FAERS Safety Report 11433806 (Version 1)
Quarter: 2015Q3

REPORT INFORMATION
  Report Type: Spontaneous
  Country: US (occurrence: None)
  Receive Date: 20150828
  Receipt Date: 20150828
  Transmission Date: 20151125
  Serious: No
  Sender: FDA-Public Use
  Company Number: None

PATIENT

DRUGS (1)
  1. XYLOCAINE WITH EPINEPHRNE 1% 20 ML (200 MG/20ML) APP PHARMACEUTICALS [Suspect]
     Active Substance: EPINEPHRINE\LIDOCAINE HYDROCHLORIDE
     Indication: INJECTION

REACTIONS (2)
  - Product label confusion [None]
  - Circumstance or information capable of leading to medication error [None]
